FAERS Safety Report 9197350 (Version 2)
Quarter: 2013Q3

REPORT INFORMATION
  Report Type: Report from Study
  Country: US (occurrence: US)
  Receive Date: 20130328
  Receipt Date: 20130717
  Transmission Date: 20140515
  Serious: Yes (Other)
  Sender: FDA-Public Use
  Company Number: PHHY2013US029780

PATIENT
  Sex: Female

DRUGS (2)
  1. GILENYA [Suspect]
     Indication: MULTIPLE SCLEROSIS
     Dosage: 0.5 MG, DAILY
     Route: 048
     Dates: start: 20110817, end: 201304
  2. NSAID^S [Concomitant]

REACTIONS (7)
  - Abdominal pain [Not Recovered/Not Resolved]
  - Confusional state [Unknown]
  - Chromaturia [Unknown]
  - Fatigue [Unknown]
  - Decreased appetite [Unknown]
  - Gastric ulcer [Unknown]
  - Weight decreased [Unknown]
